FAERS Safety Report 17939420 (Version 1)
Quarter: 2020Q2

REPORT INFORMATION
  Report Type: Spontaneous
  Country: US (occurrence: US)
  Receive Date: 20200625
  Receipt Date: 20200625
  Transmission Date: 20200714
  Serious: Yes (Hospitalization, Other)
  Sender: FDA-Public Use
  Company Number: US-MICRO LABS LIMITED-ML2020-01918

PATIENT
  Age: 65 Year
  Sex: Female

DRUGS (10)
  1. OMEPRAZOLE. [Suspect]
     Active Substance: OMEPRAZOLE
  2. GLIPIZIDE. [Suspect]
     Active Substance: GLIPIZIDE
  3. TAMSULOSIN [Suspect]
     Active Substance: TAMSULOSIN
  4. CARVEDILOL. [Suspect]
     Active Substance: CARVEDILOL
  5. FINASTERIDE. [Suspect]
     Active Substance: FINASTERIDE
  6. DONEPEZIL. [Suspect]
     Active Substance: DONEPEZIL
  7. SIMVASTATIN. [Suspect]
     Active Substance: SIMVASTATIN
  8. METFORMIN [Suspect]
     Active Substance: METFORMIN HYDROCHLORIDE
     Dosage: 14 G
     Route: 048
  9. POTASSIUM CHLORIDE. [Suspect]
     Active Substance: POTASSIUM CHLORIDE
  10. COBALAMIN [Suspect]
     Active Substance: COBALAMIN

REACTIONS (2)
  - Overdose [Unknown]
  - Lactic acidosis [Unknown]
